FAERS Safety Report 5980194-7 (Version None)
Quarter: 2008Q4

REPORT INFORMATION
  Report Type: 
  Country: None (occurrence: None)
  Receive Date: 20081205
  Receipt Date: 20081203
  Transmission Date: 20090506
  Serious: Yes (Hospitalization)
  Sender: FDA-Public Use
  Company Number: FR-BRISTOL-MYERS SQUIBB COMPANY-14430599

PATIENT
  Age: 36 Year
  Sex: Male

DRUGS (3)
  1. REYATAZ [Suspect]
     Indication: HIV INFECTION
     Dates: start: 20060105
  2. KIVEXA [Suspect]
     Indication: HIV INFECTION
     Dates: start: 20060105
  3. NORVIR [Suspect]
     Indication: HIV INFECTION
     Dates: start: 20060105

REACTIONS (1)
  - RENAL COLIC [None]
